FAERS Safety Report 7050366-1 (Version None)
Quarter: 2010Q4

REPORT INFORMATION
  Report Type: 
  Country: None (occurrence: None)
  Receive Date: 20101013
  Receipt Date: 20100930
  Transmission Date: 20110411
  Serious: Yes (Hospitalization)
  Sender: FDA-Public Use
  Company Number: 006953

PATIENT
  Sex: Female

DRUGS (13)
  1. CERTOLIZUMAB PEGOL/PLACEBO (INVESTIGATIONAL DRUG) [Suspect]
     Indication: RHEUMATOID ARTHRITIS
     Dosage: (RA0006 SUBCUTANEOUS), (RA0006 SUBCUTANEOUS), 200 MG 1X/2 WEEKS SUBCUTANEOUS)
     Route: 058
     Dates: start: 20091126
  2. CERTOLIZUMAB PEGOL/PLACEBO (INVESTIGATIONAL DRUG) [Suspect]
     Indication: RHEUMATOID ARTHRITIS
     Dosage: (RA0006 SUBCUTANEOUS), (RA0006 SUBCUTANEOUS), 200 MG 1X/2 WEEKS SUBCUTANEOUS)
     Route: 058
     Dates: start: 20100218
  3. CERTOLIZUMAB PEGOL/PLACEBO (INVESTIGATIONAL DRUG) [Suspect]
     Indication: RHEUMATOID ARTHRITIS
     Dosage: (RA0006 SUBCUTANEOUS), (RA0006 SUBCUTANEOUS), 200 MG 1X/2 WEEKS SUBCUTANEOUS)
     Route: 058
     Dates: start: 20100318
  4. PREDNISOLONE [Suspect]
     Indication: RHEUMATOID ARTHRITIS
     Dosage: 5 MG ORAL
     Route: 048
     Dates: start: 20090503
  5. FELBINAC [Concomitant]
  6. KETOPROFEN [Concomitant]
  7. ZALTOPROFEN [Concomitant]
  8. MOSAPRIDE [Concomitant]
  9. INSULIN LISPRO [Concomitant]
  10. VOGLIBOSE [Concomitant]
  11. MAGNESIUM OXIDE [Concomitant]
  12. BROTIZOLAM [Concomitant]
  13. EZETIMIBE [Concomitant]

REACTIONS (6)
  - BACK PAIN [None]
  - BRONCHOPNEUMONIA [None]
  - DECREASED APPETITE [None]
  - OSTEOPOROSIS [None]
  - SNEEZING [None]
  - SPINAL COMPRESSION FRACTURE [None]
